FAERS Safety Report 10647042 (Version 2)
Quarter: 2015Q1

REPORT INFORMATION
  Report Type: Spontaneous
  Country: US (occurrence: US)
  Receive Date: 20141211
  Receipt Date: 20150312
  Transmission Date: 20150720
  Serious: No
  Sender: FDA-Public Use
  Company Number: US-INCYTE CORPORATION-2014IN003124

PATIENT
  Age: 61 Year
  Sex: Female
  Weight: 86.17 kg

DRUGS (3)
  1. JAKAFI [Suspect]
     Active Substance: RUXOLITINIB
     Indication: MYELOFIBROSIS
     Dosage: 10 MG, BID
     Route: 048
     Dates: start: 20131123, end: 2014
  2. JAKAFI [Suspect]
     Active Substance: RUXOLITINIB
     Dosage: 10 MG, QD
     Route: 048
     Dates: start: 20140514, end: 2014
  3. AROMASIN [Concomitant]
     Active Substance: EXEMESTANE

REACTIONS (6)
  - Feeling abnormal [Unknown]
  - Weight increased [Unknown]
  - Anaemia [Unknown]
  - Arthralgia [Unknown]
  - Drug dose omission [Unknown]
  - Night sweats [Unknown]

NARRATIVE: CASE EVENT DATE: 2014
